FAERS Safety Report 5177110-7 (Version None)
Quarter: 2006Q4

REPORT INFORMATION
  Report Type: 
  Country: None (occurrence: None)
  Receive Date: 20061207
  Receipt Date: 20061128
  Transmission Date: 20070319
  Serious: Yes (Other)
  Sender: FDA-Public Use
  Company Number: 2006146983

PATIENT
  Age: 60 Year
  Sex: Female
  Weight: 84 kg

DRUGS (8)
  1. GENOTROPIN [Suspect]
     Indication: HYPOPITUITARISM
     Dosage: 0.4 MG (DAILY)
     Dates: start: 19980120
  2. HYDROCORTISONE [Concomitant]
  3. PRESOMEN                                (ESTROGENS CONJUGATED) [Concomitant]
  4. ASTONIN-H                        (FLUDROCORTISONE) [Concomitant]
  5. DOCITON            (PROPRANOLOL HYDROCHLORIDE) [Concomitant]
  6. METOPROLOL TARTRATE [Concomitant]
  7. DHEA                  (PRASTERONE) [Concomitant]
  8. LEVOTHYROXINE SODIUM [Concomitant]

REACTIONS (1)
  - COLON ADENOMA [None]
